FAERS Safety Report 19738024 (Version 1)
Quarter: 2021Q3

REPORT INFORMATION
  Report Type: Report from Study
  Country: CA (occurrence: CA)
  Receive Date: 20210824
  Receipt Date: 20210824
  Transmission Date: 20211014
  Serious: Yes (Other)
  Sender: FDA-Public Use
  Company Number: CA-SA-2021SA234852

PATIENT
  Age: 30 Year
  Sex: Male

DRUGS (18)
  1. KETOTIFEN [Concomitant]
     Active Substance: KETOTIFEN
  2. KETOTIFEN [KETOTIFEN FUMARATE] [Concomitant]
  3. FLOVENT [Concomitant]
     Active Substance: FLUTICASONE PROPIONATE
  4. FLONASE [Concomitant]
     Active Substance: FLUTICASONE PROPIONATE
  5. DYMISTA [Concomitant]
     Active Substance: AZELASTINE HYDROCHLORIDE\FLUTICASONE PROPIONATE
  6. NEXIUM I.V. [Concomitant]
     Active Substance: ESOMEPRAZOLE SODIUM
  7. DUPILUMAB [Suspect]
     Active Substance: DUPILUMAB
     Indication: ASTHMA
     Dosage: 600 MG, 1X
     Route: 058
     Dates: start: 20210708, end: 20210708
  8. FLOVENT [Concomitant]
     Active Substance: FLUTICASONE PROPIONATE
  9. VENTOLIN [Concomitant]
     Active Substance: ALBUTEROL SULFATE
  10. DYMISTA [Concomitant]
     Active Substance: AZELASTINE HYDROCHLORIDE\FLUTICASONE PROPIONATE
  11. DUPILUMAB [Suspect]
     Active Substance: DUPILUMAB
     Dosage: 300 MG, QOW
     Route: 058
     Dates: start: 20210729
  12. SYMBICORT [Concomitant]
     Active Substance: BUDESONIDE\FORMOTEROL FUMARATE DIHYDRATE
  13. FLONASE [Concomitant]
     Active Substance: FLUTICASONE PROPIONATE
  14. NEXIUM I.V. [Concomitant]
     Active Substance: ESOMEPRAZOLE SODIUM
  15. AVAMYS [Concomitant]
     Active Substance: FLUTICASONE FUROATE
  16. SYMBICORT [Concomitant]
     Active Substance: BUDESONIDE\FORMOTEROL FUMARATE DIHYDRATE
  17. VENTOLIN [Concomitant]
     Active Substance: ALBUTEROL SULFATE
  18. AVAMYS [Concomitant]
     Active Substance: FLUTICASONE FUROATE

REACTIONS (3)
  - Palpitations [Recovered/Resolved]
  - Syncope [Recovered/Resolved]
  - Eosinophil count increased [Recovering/Resolving]

NARRATIVE: CASE EVENT DATE: 20210708
